FAERS Safety Report 6333011-X (Version None)
Quarter: 2009Q3

REPORT INFORMATION
  Report Type: 
  Country: None (occurrence: None)
  Receive Date: 20090828
  Receipt Date: 20090822
  Transmission Date: 20100115
  Serious: Yes (Other)
  Sender: FDA-Public Use
  Company Number: PHHY2009DE36118

PATIENT
  Sex: Male

DRUGS (3)
  1. RASILEZ [Suspect]
     Indication: HYPERTENSION
     Dosage: 300 MG/DAY
     Dates: start: 20080101, end: 20090701
  2. RASILEZ [Suspect]
     Dosage: 150 MG/DAY
     Dates: start: 20090701
  3. NOVOPULMON [Concomitant]
     Dosage: 1 PUFF/D

REACTIONS (2)
  - FATIGUE [None]
  - MUSCLE RUPTURE [None]
